FAERS Safety Report 7376392-0 (Version None)
Quarter: 2011Q1

REPORT INFORMATION
  Report Type: 
  Country: None (occurrence: None)
  Receive Date: 20110325
  Receipt Date: 20091029
  Transmission Date: 20110831
  Serious: Yes (Hospitalization, Other)
  Sender: FDA-Public Use
  Company Number: US-BAYER-200937391NA

PATIENT
  Sex: Male
  Weight: 90.703 kg

DRUGS (23)
  1. BEXTRA [Concomitant]
     Dosage: UNK
     Dates: start: 20020527
  2. WARFARIN [Concomitant]
     Dosage: 5 MG, EVERY OTHER NIGHT
     Route: 048
     Dates: start: 20020912
  3. MICARDIS [Concomitant]
     Dosage: UNK
     Route: 048
     Dates: start: 20031024
  4. LABETALOL [Concomitant]
     Dosage: 10 MG, UNK
     Route: 042
     Dates: start: 20040310
  5. DOBUTAMINE [Concomitant]
     Route: 042
  6. TARKA [Concomitant]
     Dosage: 2/180MG DAILY
     Route: 048
     Dates: start: 20031217
  7. TRASYLOL [Suspect]
     Dosage: 100 ML, PRIME DOSE
     Dates: start: 20040311, end: 20040311
  8. PLASMA [Concomitant]
     Dosage: 4 U, UNK
  9. PLATELETS [Concomitant]
     Dosage: 2 U, UNK
  10. TRASYLOL [Suspect]
     Indication: CORONARY ARTERY BYPASS
     Dosage: 1 ML, TEST DOSE
     Route: 042
  11. LASIX [Concomitant]
     Dosage: UNK UNK, PRN
     Route: 048
  12. DOPAMINE [Concomitant]
     Dosage: UNK
     Route: 042
  13. ALBUMIN (HUMAN) [Concomitant]
     Route: 042
  14. HEPARIN [Concomitant]
     Dosage: UNK
     Route: 042
     Dates: start: 20040310
  15. LIPITOR [Concomitant]
     Dosage: 10 MG, QD
  16. NITROGLYCERIN [Concomitant]
     Dosage: 1 INCH PASTE /INTRAVENOUS DRIP
     Dates: start: 20040310
  17. INTEGRILIN [Concomitant]
     Dosage: 7.9ML BOLUS THEN 14ML/HOUR DRIP
     Route: 042
     Dates: start: 20040310, end: 20040310
  18. AXID [Concomitant]
     Dosage: 150 MG, BID
     Route: 048
  19. VANCOMYCIN [Concomitant]
     Dosage: 4 G, UNK
     Route: 042
     Dates: start: 20040311
  20. RED BLOOD CELLS [Concomitant]
     Dosage: 1 U, UNK
  21. LOPRESSOR [Concomitant]
     Dosage: 5 MG, UNK
     Route: 042
     Dates: start: 20040311
  22. TRASYLOL [Suspect]
     Dosage: INITIAL DOSE 100 ML
     Route: 042
     Dates: start: 20040311, end: 20040311
  23. TRASYLOL [Suspect]
     Dosage: 25 ML, Q1HR
     Route: 042
     Dates: start: 20040311, end: 20040311

REACTIONS (5)
  - RENAL FAILURE [None]
  - PAIN [None]
  - UNEVALUABLE EVENT [None]
  - RENAL FAILURE ACUTE [None]
  - INJURY [None]
